FAERS Safety Report 23574340 (Version 1)
Quarter: 2024Q1

REPORT INFORMATION
  Report Type: Report from Study
  Country: US (occurrence: US)
  Receive Date: 20240228
  Receipt Date: 20240228
  Transmission Date: 20240409
  Serious: Yes (Death, Other)
  Sender: FDA-Public Use
  Company Number: US-GILEAD-2024-0663269

PATIENT
  Age: 75 Year
  Sex: Male

DRUGS (1)
  1. SACITUZUMAB GOVITECAN-HZIY [Suspect]
     Active Substance: SACITUZUMAB GOVITECAN-HZIY
     Indication: Bladder cancer
     Dosage: 700MG IV ON DAY 1 AND 8 EVERY 21 DAYS
     Route: 042
     Dates: start: 20231027

REACTIONS (1)
  - Death [Fatal]

NARRATIVE: CASE EVENT DATE: 20240212
